FAERS Safety Report 24886690 (Version 1)
Quarter: 2025Q1

REPORT INFORMATION
  Report Type: Spontaneous
  Country: IN (occurrence: IN)
  Receive Date: 20250126
  Receipt Date: 20250126
  Transmission Date: 20250409
  Serious: Yes (Other)
  Sender: ZYDUS PHARM
  Company Number: IN-CADILA HEALTHCARE LIMITED-IN-ZYDUS-118250

PATIENT

DRUGS (3)
  1. LINEZOLID [Suspect]
     Active Substance: LINEZOLID
     Indication: Postoperative wound infection
     Route: 048
  2. URSODIOL [Suspect]
     Active Substance: URSODIOL
     Indication: Product used for unknown indication
     Route: 048
  3. IRON [Suspect]
     Active Substance: IRON
     Indication: Haemoglobin decreased
     Route: 065

REACTIONS (1)
  - Faeces discoloured [Recovering/Resolving]

NARRATIVE: CASE EVENT DATE: 20250106
